FAERS Safety Report 4953519-9 (Version None)
Quarter: 2006Q1

REPORT INFORMATION
  Report Type: 
  Country: None (occurrence: None)
  Receive Date: 20060324
  Receipt Date: 20060313
  Transmission Date: 20060701
  Serious: Yes (Other)
  Sender: FDA-Public Use
  Company Number: GB-ROCHE-440444

PATIENT
  Age: 72 Year
  Sex: Male
  Weight: 101.5 kg

DRUGS (3)
  1. BONIVA [Suspect]
     Indication: OSTEOPOROSIS
     Route: 048
     Dates: start: 20060220, end: 20060223
  2. GLYCERYL TRINITRATE [Concomitant]
     Route: 065
     Dates: start: 20020926
  3. SODIUM PICOSULPHATE [Concomitant]
     Route: 065
     Dates: end: 20060125

REACTIONS (1)
  - HAEMOPTYSIS [None]
